FAERS Safety Report 4706092-4 (Version None)
Quarter: 2005Q2

REPORT INFORMATION
  Report Type: 
  Country: None (occurrence: None)
  Receive Date: 20050627
  Receipt Date: 20050120
  Transmission Date: 20051028
  Serious: Yes (Hospitalization)
  Sender: FDA-Public Use
  Company Number: US-JNJFOC-20050105361

PATIENT
  Age: 88 Year
  Sex: Male

DRUGS (4)
  1. DURAGESIC-100 [Suspect]
     Indication: PAIN
     Dosage: SEE IMAGE
     Route: 062
     Dates: start: 20041123
  2. DURAGESIC-100 [Suspect]
     Indication: PAIN
     Dosage: SEE IMAGE
     Route: 062
     Dates: start: 20041215
  3. . [Concomitant]
  4. NEURONTIN [Concomitant]

REACTIONS (3)
  - CONFUSIONAL STATE [None]
  - URINARY RETENTION [None]
  - WEIGHT DECREASED [None]
